FAERS Safety Report 9224896 (Version 5)
Quarter: 2014Q2

REPORT INFORMATION
  Report Type: Spontaneous
  Country: GB (occurrence: GB)
  Receive Date: 20130411
  Receipt Date: 20140616
  Transmission Date: 20141212
  Serious: Yes (Other)
  Sender: FDA-Public Use
  Company Number: GB-VERTEX PHARMACEUTICALS INC.-2013-004708

PATIENT
  Age: 61 Year
  Sex: Male

DRUGS (5)
  1. INCIVO [Suspect]
     Indication: HEPATITIS C
     Dosage: 750 MG, TID
     Route: 048
     Dates: start: 20130214, end: 20130402
  2. COPEGUS [Suspect]
     Indication: HEPATITIS C
     Dosage: 600 MG, BID
     Route: 048
     Dates: start: 20130109, end: 20130221
  3. COPEGUS [Suspect]
     Dosage: 600 MG, QD
     Route: 048
     Dates: start: 20130221, end: 20130317
  4. COPEGUS [Suspect]
     Dosage: 200 MG, QD
     Route: 048
     Dates: start: 20130401
  5. PEGASYS [Suspect]
     Indication: HEPATITIS C
     Dosage: 180 ?G, QW
     Route: 058
     Dates: start: 20130109, end: 20131211

REACTIONS (5)
  - Dizziness [Recovered/Resolved]
  - Dyspnoea [Unknown]
  - Hypotension [Recovered/Resolved]
  - Anaemia [Recovered/Resolved]
  - Herpes zoster [Unknown]
